FAERS Safety Report 5206747-1 (Version None)
Quarter: 2007Q1

REPORT INFORMATION
  Report Type: 
  Country: None (occurrence: None)
  Receive Date: 20070108
  Receipt Date: 20070102
  Transmission Date: 20070707
  Serious: Yes (Hospitalization, Other)
  Sender: FDA-Public Use
  Company Number: ESWYE174114JUL06

PATIENT
  Age: 62 Year
  Sex: Female

DRUGS (5)
  1. RAPAMUNE [Suspect]
     Indication: PROPHYLAXIS AGAINST TRANSPLANT REJECTION
     Dosage: 3 + 1.2 + 1.3 MG 1X PER 1 DAY ORAL - SEE IMAGE
     Route: 048
     Dates: start: 20050506, end: 20051003
  2. RAPAMUNE [Suspect]
     Indication: PROPHYLAXIS AGAINST TRANSPLANT REJECTION
     Dosage: 3 + 1.2 + 1.3 MG 1X PER 1 DAY ORAL - SEE IMAGE
     Route: 048
     Dates: start: 20051004, end: 20060317
  3. RAPAMUNE [Suspect]
     Indication: PROPHYLAXIS AGAINST TRANSPLANT REJECTION
     Dosage: 3 + 1.2 + 1.3 MG 1X PER 1 DAY ORAL - SEE IMAGE
     Route: 048
     Dates: start: 20060318, end: 20060501
  4. PROGRAF [Concomitant]
  5. CELLCEPT [Concomitant]

REACTIONS (2)
  - NO THERAPEUTIC RESPONSE [None]
  - PNEUMONITIS [None]
